FAERS Safety Report 17529126 (Version 3)
Quarter: 2020Q4

REPORT INFORMATION
  Report Type: Spontaneous
  Country: IT (occurrence: IT)
  Receive Date: 20200312
  Receipt Date: 20201012
  Transmission Date: 20210113
  Serious: Yes (Life-Threatening, Hospitalization, Other)
  Sender: FDA-Public Use
  Company Number: IT-AUROBINDO-AUR-APL-2020-011793

PATIENT
  Age: 49 Year
  Sex: Female

DRUGS (4)
  1. PREGABALIN. [Concomitant]
     Active Substance: PREGABALIN
     Indication: SEIZURE
     Dosage: UNK
     Route: 065
  2. TRAMADOL HYDROCHLORIDE. [Suspect]
     Active Substance: TRAMADOL HYDROCHLORIDE
     Indication: PRODUCT USED FOR UNKNOWN INDICATION
     Dosage: 6 GRAM TOTAL
     Route: 065
  3. VALPROIC ACID. [Concomitant]
     Active Substance: VALPROIC ACID
     Indication: SEIZURE
     Dosage: UNK
     Route: 065
  4. QUETIAPINE. [Suspect]
     Active Substance: QUETIAPINE
     Indication: PRODUCT USED FOR UNKNOWN INDICATION
     Dosage: UNK
     Route: 065

REACTIONS (13)
  - Shock [Recovering/Resolving]
  - Intentional overdose [Unknown]
  - Mydriasis [Recovering/Resolving]
  - Mitral valve incompetence [Recovering/Resolving]
  - Loss of consciousness [Recovering/Resolving]
  - Acidosis [Recovering/Resolving]
  - Acute kidney injury [Recovering/Resolving]
  - Left ventricular dilatation [Recovering/Resolving]
  - Metabolic encephalopathy [Recovering/Resolving]
  - Hepatic failure [Recovering/Resolving]
  - Syncope [Recovered/Resolved]
  - Multiple organ dysfunction syndrome [Recovered/Resolved]
  - Toxicity to various agents [Unknown]
